FAERS Safety Report 6508599-6 (Version None)
Quarter: 2009Q4

REPORT INFORMATION
  Report Type: 
  Country: None (occurrence: None)
  Receive Date: 20091221
  Receipt Date: 20091203
  Transmission Date: 20100525
  Serious: Yes (Other)
  Sender: FDA-Public Use
  Company Number: CA-GENENTECH-295944

PATIENT
  Sex: Female

DRUGS (4)
  1. XOLAIR [Suspect]
     Indication: ASTHMA
     Dosage: 300 MG, 1/MONTH
     Route: 058
     Dates: start: 20080804
  2. XOLAIR [Suspect]
     Dosage: UNK
     Dates: start: 20090925
  3. XOLAIR [Suspect]
     Dosage: UNK
     Dates: start: 20091023
  4. XOLAIR [Suspect]
     Dosage: UNK
     Dates: start: 20091202

REACTIONS (2)
  - FATIGUE [None]
  - HYPERSOMNIA [None]
